FAERS Safety Report 13992900 (Version 1)
Quarter: 2017Q3

REPORT INFORMATION
  Report Type: Report from Study
  Country: US (occurrence: US)
  Receive Date: 20170920
  Receipt Date: 20170920
  Transmission Date: 20171128
  Serious: No
  Sender: FDA-Public Use
  Company Number: US-AMGEN-USASL2017141309

PATIENT
  Sex: Female

DRUGS (1)
  1. ENBREL [Suspect]
     Active Substance: ETANERCEPT
     Indication: RHEUMATOID ARTHRITIS
     Dosage: 50 MG, QWK
     Route: 065

REACTIONS (8)
  - Mobility decreased [Unknown]
  - Injection site pruritus [Recovered/Resolved]
  - Musculoskeletal pain [Unknown]
  - Injection site erythema [Recovered/Resolved]
  - Pain in extremity [Unknown]
  - Atrophy [Unknown]
  - Injection site urticaria [Recovered/Resolved]
  - Injection site pain [Unknown]
